FAERS Safety Report 6930861-3 (Version None)
Quarter: 2010Q3

REPORT INFORMATION
  Report Type: 
  Country: None (occurrence: None)
  Receive Date: 20100818
  Receipt Date: 20100816
  Transmission Date: 20110219
  Serious: Yes (Hospitalization)
  Sender: FDA-Public Use
  Company Number: US-BRISTOL-MYERS SQUIBB COMPANY-15241870

PATIENT
  Age: 79 Year
  Sex: Male

DRUGS (12)
  1. COUMADIN [Suspect]
     Route: 065
  2. VESICARE [Suspect]
     Indication: HYPERTONIC BLADDER
     Dosage: JUL2007-23JUN2010;10MG UID/QD 24JUN2010-ONG
     Route: 048
     Dates: start: 20070701
  3. CHONDROITIN SULFATE [Concomitant]
  4. GLUCOPHAGE [Concomitant]
  5. ACTOS [Concomitant]
  6. GLIPIZIDE [Concomitant]
  7. TOPROL-XL [Concomitant]
  8. ZETIA [Concomitant]
  9. CHONDROITIN SULFATE + GLUCOSAMINE [Concomitant]
  10. METOPROLOL SUCCINATE [Concomitant]
  11. METFORMIN HCL [Concomitant]
  12. WARFARIN SODIUM [Concomitant]

REACTIONS (3)
  - HAEMORRHAGE [None]
  - THROMBOSIS [None]
  - URINARY BLADDER POLYP [None]
